FAERS Safety Report 9998833 (Version 1)
Quarter: 2014Q1

REPORT INFORMATION
  Report Type: Spontaneous
  Country: US (occurrence: US)
  Receive Date: 20140312
  Receipt Date: 20140312
  Transmission Date: 20141002
  Serious: No
  Sender: FDA-Public Use
  Company Number: US-BIOGENIDEC-2014BI020416

PATIENT
  Age: 51 Year
  Sex: Female

DRUGS (14)
  1. TECFIDERA [Suspect]
     Indication: MULTIPLE SCLEROSIS
     Route: 048
     Dates: start: 20131113, end: 20140226
  2. DILAUDID [Concomitant]
  3. DIOVAN [Concomitant]
  4. LYRICA [Concomitant]
  5. MELOXICAM [Concomitant]
  6. METHADONE HCL [Concomitant]
  7. OMEPRAZOLE [Concomitant]
  8. OXYBUTYNIN CHLORIDE ER [Concomitant]
  9. PERCOCET [Concomitant]
  10. PROVIGIL [Concomitant]
  11. REGLAN [Concomitant]
  12. ROBAXIN [Concomitant]
  13. SAVELLA [Concomitant]
  14. VITAMIN D [Concomitant]

REACTIONS (1)
  - Muscle spasms [Unknown]
